FAERS Safety Report 16780995 (Version 1)
Quarter: 2019Q3

REPORT INFORMATION
  Report Type: Spontaneous
  Country: PL (occurrence: PL)
  Receive Date: 20190906
  Receipt Date: 20190906
  Transmission Date: 20191005
  Serious: Yes (Other)
  Sender: FDA-Public Use
  Company Number: PL-PFIZER INC-2019379038

PATIENT
  Sex: Male

DRUGS (2)
  1. PREGABALIN. [Suspect]
     Active Substance: PREGABALIN
     Indication: NEURALGIA
     Dosage: UNK
  2. PREGABALIN. [Suspect]
     Active Substance: PREGABALIN
     Indication: HYPERACUSIS

REACTIONS (44)
  - Clumsiness [Unknown]
  - Rash [Unknown]
  - Blood pressure decreased [Unknown]
  - Headache [Unknown]
  - Hypersensitivity [Unknown]
  - Musculoskeletal stiffness [Unknown]
  - Apathy [Unknown]
  - Erectile dysfunction [Unknown]
  - Reflux gastritis [Unknown]
  - Labile blood pressure [Unknown]
  - Increased appetite [Unknown]
  - Hallucination [Unknown]
  - Weight increased [Unknown]
  - Flatulence [Unknown]
  - Feeling abnormal [Unknown]
  - Dry eye [Unknown]
  - Pollakiuria [Unknown]
  - Nasal congestion [Unknown]
  - Disturbance in attention [Unknown]
  - Hot flush [Unknown]
  - Somnolence [Unknown]
  - Lacrimation increased [Unknown]
  - Diplopia [Unknown]
  - Mucosal dryness [Unknown]
  - Insomnia [Unknown]
  - Dyskinesia [Unknown]
  - Eye irritation [Unknown]
  - Hyperhidrosis [Unknown]
  - Memory impairment [Unknown]
  - Dizziness [Unknown]
  - Abdominal pain upper [Unknown]
  - Myalgia [Unknown]
  - Bladder spasm [Unknown]
  - Euphoric mood [Unknown]
  - Lethargy [Unknown]
  - Depression [Unknown]
  - Speech disorder [Unknown]
  - Vision blurred [Unknown]
  - Fatigue [Unknown]
  - Obstruction [Unknown]
  - Abnormal dreams [Unknown]
  - Pruritus [Unknown]
  - Urinary incontinence [Unknown]
  - Mood altered [Unknown]
